FAERS Safety Report 4598596-2 (Version None)
Quarter: 2005Q1

REPORT INFORMATION
  Report Type: 
  Country: None (occurrence: None)
  Receive Date: 20050304
  Receipt Date: 20050221
  Transmission Date: 20050727
  Serious: Yes (Other)
  Sender: FDA-Public Use
  Company Number: GB-ROCHE-396292

PATIENT
  Age: 88 Year
  Sex: Female

DRUGS (9)
  1. TAMIFLU [Suspect]
     Indication: INFLUENZA
     Route: 048
     Dates: start: 20050126, end: 20050131
  2. ASPIRIN [Concomitant]
  3. PLAVIX [Concomitant]
  4. CO-CARELDOPA [Concomitant]
     Dosage: 25/100 1 X 5 DAILY.
     Route: 001
  5. FOLIC ACID [Concomitant]
  6. FRUSEMIDE [Concomitant]
  7. LACTULOSE [Concomitant]
  8. MOVICOL [Concomitant]
  9. PARACETAMOL [Concomitant]

REACTIONS (3)
  - CHROMATURIA [None]
  - PROTEINURIA [None]
  - URINE ODOUR ABNORMAL [None]
